FAERS Safety Report 13742310 (Version 3)
Quarter: 2017Q3

REPORT INFORMATION
  Report Type: Spontaneous
  Country: US (occurrence: US)
  Receive Date: 20170711
  Receipt Date: 20170802
  Transmission Date: 20171127
  Serious: Yes (Hospitalization, Other)
  Sender: FDA-Public Use
  Company Number: US-ALEXION PHARMACEUTICALS INC-A201707448

PATIENT
  Sex: Male

DRUGS (1)
  1. SOLIRIS [Suspect]
     Active Substance: ECULIZUMAB
     Indication: HAEMOLYTIC URAEMIC SYNDROME
     Route: 042

REACTIONS (8)
  - Back pain [Unknown]
  - Suicidal ideation [Unknown]
  - Speech disorder [Unknown]
  - Abdominal pain upper [Not Recovered/Not Resolved]
  - Urinary retention [Unknown]
  - Dizziness [Unknown]
  - Gait inability [Unknown]
  - Vision blurred [Unknown]

NARRATIVE: CASE EVENT DATE: 20170629
